FAERS Safety Report 6231052-4 (Version None)
Quarter: 2009Q2

REPORT INFORMATION
  Report Type: 
  Country: None (occurrence: None)
  Receive Date: 20090611
  Receipt Date: 20090611
  Transmission Date: 20091009
  Serious: Yes (Other)
  Sender: FDA-Public Use
  Company Number: None

PATIENT
  Sex: Female
  Weight: 35 kg

DRUGS (4)
  1. TOPIRAMATE [Suspect]
     Indication: EPILEPSY
     Dosage: 1 TABLET TID PO
     Route: 048
     Dates: start: 20090501
  2. TOPIRAMATE [Suspect]
     Dosage: 1 TABLET @ H.S. PO
     Route: 048
     Dates: start: 20090501
  3. LAMICTAL [Concomitant]
  4. KLONOPIN [Concomitant]

REACTIONS (2)
  - ABNORMAL BEHAVIOUR [None]
  - PRODUCT SUBSTITUTION ISSUE [None]
